FAERS Safety Report 5477712-4 (Version None)
Quarter: 2007Q4

REPORT INFORMATION
  Report Type: 
  Country: None (occurrence: None)
  Receive Date: 20071003
  Receipt Date: 20071003
  Transmission Date: 20080405
  Serious: No
  Sender: FDA-Public Use
  Company Number: None

PATIENT
  Age: 46 Year
  Sex: Male

DRUGS (2)
  1. SIMVASTATIN [Suspect]
     Dosage: 80 MG DAILY
  2. CYCLOSPORINE [Suspect]
     Dosage: 125MG BID

REACTIONS (1)
  - RHABDOMYOLYSIS [None]
